FAERS Safety Report 16319837 (Version 1)
Quarter: 2019Q2

REPORT INFORMATION
  Report Type: Spontaneous
  Country: US (occurrence: US)
  Receive Date: 20190410
  Receipt Date: 20190410
  Transmission Date: 20190711
  Serious: Yes (Other)
  Sender: FDA-Public Use
  Company Number: None

PATIENT
  Age: 71 Year
  Sex: Female

DRUGS (1)
  1. LEVOFLOXACIN. [Suspect]
     Active Substance: LEVOFLOXACIN
     Indication: UPPER RESPIRATORY TRACT INFECTION
     Route: 048
     Dates: start: 20190404, end: 20190409

REACTIONS (4)
  - Muscle spasms [None]
  - Muscle spasticity [None]
  - Extrapyramidal disorder [None]
  - Sensory disturbance [None]

NARRATIVE: CASE EVENT DATE: 20190407
